FAERS Safety Report 8984597 (Version 1)
Quarter: 2012Q4

REPORT INFORMATION
  Report Type: 
  Country: GB (occurrence: GB)
  Receive Date: 20121226
  Receipt Date: 20121226
  Transmission Date: 20130627
  Serious: Yes (Hospitalization, Disabling)
  Sender: FDA-Public Use
  Company Number: GB-MILLENNIUM PHARMACEUTICALS, INC.-2012-08445

PATIENT

DRUGS (12)
  1. VELCADE [Suspect]
     Indication: MULTIPLE MYELOMA
     Dosage: 2.6 mg, UNK
     Route: 042
     Dates: start: 20121008, end: 20121029
  2. DEXAMETHASONE [Suspect]
     Indication: MULTIPLE MYELOMA
     Dosage: 20 mg, UNK
     Route: 065
     Dates: start: 20121008, end: 20121029
  3. ACICLOVIR [Concomitant]
     Indication: PROPHYLAXIS
     Dosage: 400 mg, UNK
     Dates: start: 201202
  4. DULOXETINE [Concomitant]
     Indication: DEPRESSION
     Dosage: 60 mg, UNK
  5. FLUCONAZOLE [Concomitant]
     Dosage: 50 mg, UNK
     Dates: start: 201202
  6. LANSOPRAZOLE [Concomitant]
     Dosage: 30 mg, UNK
     Dates: start: 201202
  7. TINZAPARIN [Concomitant]
     Indication: PULMONARY EMBOLISM
     Dosage: 160000 units
     Dates: start: 201206
  8. VALPROIC ACID [Concomitant]
     Indication: DEPRESSION
     Dosage: 250 mg, UNK
  9. VALPROIC ACID [Concomitant]
     Dosage: 500 mg, UNK
  10. BACLOFEN [Concomitant]
     Indication: BACK PAIN
     Dosage: 10 mg, UNK
  11. ALLOPURINOL [Concomitant]
     Indication: PROPHYLAXIS
     Dosage: 300 mg, UNK
     Dates: start: 201202
  12. CO-TRIMOXAZOLE [Concomitant]
     Dosage: 960 mg, UNK
     Dates: start: 201202

REACTIONS (2)
  - Cardiomyopathy [Not Recovered/Not Resolved]
  - Drug ineffective [Unknown]
